FAERS Safety Report 5940608-5 (Version None)
Quarter: 2008Q4

REPORT INFORMATION
  Report Type: 
  Country: None (occurrence: None)
  Receive Date: 20081104
  Receipt Date: 20070501
  Transmission Date: 20090506
  Serious: Yes (Hospitalization)
  Sender: FDA-Public Use
  Company Number: US-ASTRAZENECA-2008UW23978

PATIENT
  Age: 52 Year
  Sex: Female
  Weight: 84.4 kg

DRUGS (60)
  1. SEROQUEL [Suspect]
     Indication: MAJOR DEPRESSION
     Dosage: 100 MG, 200 MG, 300 MG
     Route: 048
     Dates: start: 20021119
  2. SEROQUEL [Suspect]
     Indication: SLEEP DISORDER
     Dosage: 100 MG, 200 MG, 300 MG
     Route: 048
     Dates: start: 20021119
  3. ZYPREXA [Concomitant]
     Dates: end: 20021119
  4. CELEXA [Concomitant]
  5. COMBIVENT [Concomitant]
  6. SEREVENT [Concomitant]
  7. ALLEGRA [Concomitant]
  8. PRILOSEC [Concomitant]
     Route: 048
  9. FLONASE [Concomitant]
  10. CEFTIN [Concomitant]
  11. SYNTHROID [Concomitant]
  12. CELEBREX [Concomitant]
  13. ALBUTEROL [Concomitant]
  14. OXYCONTIN [Concomitant]
  15. LOTENSIN [Concomitant]
  16. GLUCOPHAGE [Concomitant]
  17. ADIPEX [Concomitant]
  18. ZOCOR [Concomitant]
  19. RESTORIL [Concomitant]
  20. ADVAIR DISKUS 100/50 [Concomitant]
  21. SINGULAIR [Concomitant]
  22. LIPITOR [Concomitant]
  23. PROTONIX [Concomitant]
  24. CLARITIN [Concomitant]
  25. LEXAPRO [Concomitant]
  26. ATARAX [Concomitant]
  27. ZETIA [Concomitant]
  28. ACTONEL [Concomitant]
  29. ABILIFY [Concomitant]
  30. ALTACE [Concomitant]
  31. CRESTOR [Concomitant]
  32. RISPERDAL [Concomitant]
  33. NAPROXEN [Concomitant]
  34. HYDROCODONE/APAP [Concomitant]
  35. CEPHALEXIN [Concomitant]
  36. ATROVENT [Concomitant]
  37. BIAXIN [Concomitant]
  38. DOXYCYCLINE [Concomitant]
  39. DIFLUCAN [Concomitant]
  40. GUAIFENESIN [Concomitant]
  41. NEXIUM [Concomitant]
     Route: 048
  42. DITUSS G [Concomitant]
  43. METHYLPREDNISOLONE 16MG TAB [Concomitant]
     Dosage: 05-JAN-2004; 25-OCT-2004
  44. CYCLOBENZAPRINE HCL [Concomitant]
  45. TRAMADOL HCL [Concomitant]
  46. CLONIDINE [Concomitant]
  47. AUGMENTIN XR [Concomitant]
  48. CIPROFLOXACIN [Concomitant]
  49. HYDROCHLOROTHIAZIDE [Concomitant]
  50. HYOSCYAMINE [Concomitant]
  51. TRICOR [Concomitant]
  52. AMIBID DM [Concomitant]
  53. PENTAZOCINE LACTATE [Concomitant]
  54. LEVAQUIN [Concomitant]
  55. EFFEXOR XR [Concomitant]
  56. ENALAPRIL MALEATE [Concomitant]
  57. PREMARIN [Concomitant]
  58. METOCLOPRAMIDE [Concomitant]
  59. LISINOPRIL [Concomitant]
  60. DICYCLOMINE [Concomitant]

REACTIONS (2)
  - OSTEOARTHRITIS [None]
  - TYPE 2 DIABETES MELLITUS [None]
